FAERS Safety Report 5569307-9 (Version None)
Quarter: 2007Q4

REPORT INFORMATION
  Report Type: 
  Country: None (occurrence: None)
  Receive Date: 20071220
  Receipt Date: 20071210
  Transmission Date: 20080405
  Serious: Yes (Other)
  Sender: FDA-Public Use
  Company Number: US-BAYER-200714091BCC

PATIENT
  Age: 22 Year
  Sex: Female
  Weight: 59 kg

DRUGS (22)
  1. ALEVE [Suspect]
     Indication: UPPER LIMB FRACTURE
     Route: 048
     Dates: start: 19960901
  2. ASPIRIN [Suspect]
     Indication: DRUG USE FOR UNKNOWN INDICATION
  3. FENTANYL [Concomitant]
     Route: 062
  4. DEMEROL [Concomitant]
  5. CELIAC PLEXUS NERVE BLOCK [Concomitant]
  6. CYMBALTA [Concomitant]
  7. ZANAFLEX [Concomitant]
  8. SOMA [Concomitant]
  9. PLAVIX [Concomitant]
  10. PROTONIX [Concomitant]
  11. ACIPHEX [Concomitant]
  12. PREVACID [Concomitant]
  13. KLONOPIN [Concomitant]
  14. BENTYL [Concomitant]
  15. LEVSIN [Concomitant]
  16. RESTORIL [Concomitant]
  17. VYTORIN [Concomitant]
  18. PHENERGAN HCL [Concomitant]
  19. ZOFRAN [Concomitant]
  20. LIDODERM [Concomitant]
     Route: 062
  21. MIRALAX [Concomitant]
  22. DEPO-ESTRADIOL [Concomitant]

REACTIONS (8)
  - CHAPPED LIPS [None]
  - EYELID OEDEMA [None]
  - HYPERSENSITIVITY [None]
  - LIP SWELLING [None]
  - PALPITATIONS [None]
  - PRURITUS [None]
  - SWOLLEN TONGUE [None]
  - URTICARIA [None]
